FAERS Safety Report 17477472 (Version 1)
Quarter: 2020Q1

REPORT INFORMATION
  Report Type: Report from Study
  Country: US (occurrence: US)
  Receive Date: 20200228
  Receipt Date: 20200228
  Transmission Date: 20200409
  Serious: Yes (Hospitalization, Other)
  Sender: FDA-Public Use
  Company Number: US-GILEAD-2020-0452795

PATIENT
  Age: 81 Year
  Sex: Female

DRUGS (2)
  1. IDELALISIB [Suspect]
     Active Substance: IDELALISIB
     Indication: CHRONIC LYMPHOCYTIC LEUKAEMIA
     Dosage: 150 MG, BID
     Route: 065
  2. IDELALISIB [Suspect]
     Active Substance: IDELALISIB
     Dosage: 150 MG, ^QD FOR FIRST WEEK OF THERAPY^
     Route: 065

REACTIONS (3)
  - Platelet count decreased [Not Recovered/Not Resolved]
  - Transfusion [Unknown]
  - Off label use [Unknown]

NARRATIVE: CASE EVENT DATE: 20200225
